FAERS Safety Report 6896769-7 (Version None)
Quarter: 2010Q3

REPORT INFORMATION
  Report Type: 
  Country: None (occurrence: None)
  Receive Date: 20100729
  Receipt Date: 20100714
  Transmission Date: 20110219
  Serious: Yes (Other)
  Sender: FDA-Public Use
  Company Number: IPC201006-000174

PATIENT
  Age: 23 Year
  Sex: Female

DRUGS (1)
  1. HYDROXYCHLOROGUINE SULFATE (HYDROXYCHLOROQUINE SULFATE) HYDROXYCHLOROQ [Suspect]

REACTIONS (4)
  - ACUTE GENERALISED EXANTHEMATOUS PUSTULOSIS [None]
  - DERMATITIS BULLOUS [None]
  - SKIN EXFOLIATION [None]
  - THROMBOCYTOPENIA [None]
